FAERS Safety Report 5422452-0 (Version None)
Quarter: 2007Q3

REPORT INFORMATION
  Report Type: 
  Country: None (occurrence: None)
  Receive Date: 20070822
  Receipt Date: 20070816
  Transmission Date: 20080115
  Serious: Yes (Other)
  Sender: FDA-Public Use
  Company Number: US-ASTRAZENECA-2007UW19776

PATIENT
  Age: 87 Year
  Sex: Female
  Weight: 56.2 kg

DRUGS (3)
  1. CRESTOR [Suspect]
     Indication: BLOOD CHOLESTEROL INCREASED
     Route: 048
     Dates: start: 20061001
  2. ATENOLOL [Concomitant]
  3. DETROL [Concomitant]

REACTIONS (2)
  - MUSCLE MASS [None]
  - MYALGIA [None]
